FAERS Safety Report 10381459 (Version 1)
Quarter: 2014Q3

REPORT INFORMATION
  Report Type: Spontaneous
  Country: US (occurrence: US)
  Receive Date: 20140813
  Receipt Date: 20140813
  Transmission Date: 20150326
  Serious: No
  Sender: FDA-Public Use
  Company Number: US-PFIZER INC-2014221447

PATIENT
  Age: 35 Year
  Sex: Female
  Weight: 73.92 kg

DRUGS (9)
  1. LYRICA [Suspect]
     Active Substance: PREGABALIN
     Indication: FIBROMYALGIA
     Dosage: 300 MG, 1X/DAY
     Route: 048
     Dates: start: 201205, end: 20140801
  2. LORTAB [Concomitant]
     Active Substance: ACETAMINOPHEN\HYDROCODONE BITARTRATE
     Indication: PAIN
     Dosage: UNK
     Dates: start: 2012
  3. LORTAB [Concomitant]
     Active Substance: ACETAMINOPHEN\HYDROCODONE BITARTRATE
     Indication: PERIPHERAL NERVE INJURY
  4. CELEBREX [Concomitant]
     Active Substance: CELECOXIB
     Indication: NEURALGIA
     Dosage: UNK
     Dates: start: 2012
  5. CYMBALTA [Concomitant]
     Active Substance: DULOXETINE HYDROCHLORIDE
     Indication: DEPRESSION
  6. LYRICA [Suspect]
     Active Substance: PREGABALIN
     Indication: PERIPHERAL NERVE INJURY
  7. XANAX [Concomitant]
     Active Substance: ALPRAZOLAM
     Indication: ANXIETY
     Dosage: UNK
     Dates: start: 2012
  8. FLEXERIL [Concomitant]
     Active Substance: CYCLOBENZAPRINE HYDROCHLORIDE
     Indication: MUSCLE SPASMS
     Dosage: UNK
     Dates: start: 2012
  9. CYMBALTA [Concomitant]
     Active Substance: DULOXETINE HYDROCHLORIDE
     Indication: FIBROMYALGIA
     Dosage: UNK
     Dates: start: 2012

REACTIONS (5)
  - Drug withdrawal syndrome [Not Recovered/Not Resolved]
  - Pain [Not Recovered/Not Resolved]
  - Tremor [Not Recovered/Not Resolved]
  - Influenza like illness [Not Recovered/Not Resolved]
  - Nervousness [Not Recovered/Not Resolved]

NARRATIVE: CASE EVENT DATE: 20140802
